FAERS Safety Report 21327118 (Version 1)
Quarter: 2022Q3

REPORT INFORMATION
  Report Type: Spontaneous
  Country: JP (occurrence: JP)
  Receive Date: 20220913
  Receipt Date: 20220913
  Transmission Date: 20221026
  Serious: Yes (Death)
  Sender: FDA-Public Use
  Company Number: JP-JNJFOC-20210851118

PATIENT
  Sex: Male

DRUGS (2)
  1. ERLEADA [Suspect]
     Active Substance: APALUTAMIDE
     Indication: Product used for unknown indication
     Route: 048
  2. ESTRAMUSTINE [Suspect]
     Active Substance: ESTRAMUSTINE
     Dosage: DOSE UNKNOWN
     Route: 048

REACTIONS (2)
  - Tachycardia [Fatal]
  - Cardiac failure chronic [Fatal]
